FAERS Safety Report 22289600 (Version 1)
Quarter: 2023Q2

REPORT INFORMATION
  Report Type: Spontaneous
  Country: AU (occurrence: None)
  Receive Date: 20230505
  Receipt Date: 20230505
  Transmission Date: 20230722
  Serious: Yes (Other)
  Sender: FDA-Public Use
  Company Number: 2023A098826

PATIENT
  Age: 74 Year
  Sex: Female

DRUGS (3)
  1. TICAGRELOR [Suspect]
     Active Substance: TICAGRELOR
     Route: 048
  2. ACETIAMINE\ASPIRIN [Suspect]
     Active Substance: ACETIAMINE\ASPIRIN
  3. HEPARIN CALCIUM [Suspect]
     Active Substance: HEPARIN CALCIUM

REACTIONS (10)
  - Abdominal compartment syndrome [Unknown]
  - Renal failure [Unknown]
  - Respiratory failure [Unknown]
  - Retroperitoneal haemorrhage [Unknown]
  - Ventricular tachycardia [Unknown]
  - Abdominal discomfort [Unknown]
  - Abdominal distension [Unknown]
  - Coronary artery disease [Unknown]
  - Hypoperfusion [Unknown]
  - Mitral valve incompetence [Unknown]
